FAERS Safety Report 6437208-X (Version None)
Quarter: 2009Q4

REPORT INFORMATION
  Report Type: 
  Country: None (occurrence: None)
  Receive Date: 20091112
  Receipt Date: 20090807
  Transmission Date: 20100525
  Serious: No
  Sender: FDA-Public Use
  Company Number: A0801991A

PATIENT

DRUGS (1)
  1. TREXIMET [Suspect]
     Indication: DRUG USE FOR UNKNOWN INDICATION

REACTIONS (2)
  - BURNING SENSATION [None]
  - CHEST PAIN [None]
